FAERS Safety Report 4385588-1 (Version None)
Quarter: 2004Q2

REPORT INFORMATION
  Report Type: 
  Country: None (occurrence: None)
  Receive Date: 20040628
  Receipt Date: 20040607
  Transmission Date: 20050107
  Serious: Yes (Hospitalization, Other)
  Sender: FDA-Public Use
  Company Number: PHEH2004US06280

PATIENT
  Age: 45 Year
  Sex: Female
  Weight: 142 kg

DRUGS (16)
  1. ZELNORM [Suspect]
     Indication: IRRITABLE BOWEL SYNDROME
     Dosage: 6 MG, BID
     Route: 048
     Dates: start: 20040305
  2. ZELNORM [Suspect]
     Dosage: 6 MG, QD
     Route: 048
     Dates: start: 20040428
  3. ZELNORM [Suspect]
     Dosage: 6 MG, BID
     Route: 048
  4. METFORMIN HCL [Concomitant]
     Indication: DIABETES MELLITUS
     Dosage: 500 MG, QD
     Dates: start: 20040101
  5. ZEBETA [Concomitant]
     Indication: DIABETES MELLITUS
     Dosage: 5 MG, BID
     Route: 048
  6. LIPITOR [Concomitant]
     Indication: BLOOD CHOLESTEROL INCREASED
     Dosage: 10 MG, QD
     Route: 048
     Dates: start: 20040101
  7. XANAX [Concomitant]
     Indication: ANXIETY
     Dosage: .5 MG, PRN
     Dates: start: 20031201
  8. VICODIN [Concomitant]
     Indication: ABDOMINAL PAIN
     Dosage: UNK, PRN
     Dates: start: 20031201
  9. NEXIUM [Concomitant]
     Indication: GASTROOESOPHAGEAL REFLUX DISEASE
     Dosage: 40 MG, BID
     Route: 048
     Dates: start: 20040301
  10. MILK OF MAGNESIA TAB [Concomitant]
     Indication: CONSTIPATION
  11. VIOXX [Concomitant]
     Indication: ARTHRALGIA
     Dosage: 25 MG, QD
  12. ALLOPURINOL [Concomitant]
     Indication: GOUT
     Dosage: 300 MG, QD
     Route: 048
  13. PREVACID [Concomitant]
     Indication: GASTROOESOPHAGEAL REFLUX DISEASE
     Dosage: 30 MG, BID
     Route: 048
     Dates: start: 20040301
  14. GLUCOPHAGE [Concomitant]
  15. ALBUTEROL [Concomitant]
     Dosage: UNK, PRN
  16. METAMUCIL ^SEARLE^ [Concomitant]
     Dosage: 2 TABLETS, BID

REACTIONS (11)
  - ABDOMINAL PAIN [None]
  - APPENDICECTOMY [None]
  - CERVIX DISORDER [None]
  - COMPUTERISED TOMOGRAM ABNORMAL [None]
  - CONDITION AGGRAVATED [None]
  - CONSTIPATION [None]
  - DIARRHOEA [None]
  - FAECES DISCOLOURED [None]
  - HEPATIC STEATOSIS [None]
  - LAPAROSCOPY [None]
  - VOLVULUS OF BOWEL [None]
